FAERS Safety Report 5024854-3 (Version None)
Quarter: 2006Q2

REPORT INFORMATION
  Report Type: 
  Country: None (occurrence: None)
  Receive Date: 20060607
  Receipt Date: 20060601
  Transmission Date: 20061013
  Serious: Yes (Life-Threatening, Hospitalization)
  Sender: FDA-Public Use
  Company Number: 805#9#2006-00079

PATIENT
  Age: 3 Day
  Sex: Female

DRUGS (19)
  1. ALPROSTADIL [Suspect]
     Indication: HEART DISEASE CONGENITAL
     Dosage: SEE IMAGE
     Route: 041
     Dates: start: 20050330, end: 20050330
  2. ALPROSTADIL [Suspect]
     Indication: HEART DISEASE CONGENITAL
     Dosage: SEE IMAGE
     Route: 041
     Dates: start: 20050330, end: 20050330
  3. ALPROSTADIL [Suspect]
     Indication: HEART DISEASE CONGENITAL
     Dosage: SEE IMAGE
     Route: 041
     Dates: start: 20050330, end: 20050331
  4. ALPROSTADIL [Suspect]
     Indication: HEART DISEASE CONGENITAL
     Dosage: SEE IMAGE
     Route: 041
     Dates: start: 20050331, end: 20050401
  5. ALPROSTADIL [Suspect]
     Indication: HEART DISEASE CONGENITAL
     Dosage: SEE IMAGE
     Route: 041
     Dates: start: 20050401, end: 20050411
  6. DOPAMINE HCL [Concomitant]
  7. EPINEPHRINE (EPINEPHRINE HYDROCHLORIDE) [Concomitant]
  8. SODIUM BICARBONATE IN PLASTIC CONTAINER [Concomitant]
  9. HEPARIN SODIUM (HEPARIN) [Concomitant]
  10. MENATETRANONE (MENATETRENONE) [Concomitant]
  11. HUMAN ANTI-THOMBIN III, FREEZE-DRIED CONCENTRATED (ANTITHROMBIN III) [Concomitant]
  12. GABEXATE MESILATE (GABEXATE MESILATE) [Concomitant]
  13. CALCIUM GLUCONATE [Concomitant]
  14. FUROSEMIDE [Concomitant]
  15. CEFOTAXIME SODIUM [Concomitant]
  16. MIDAZOLAM (MIDAZOLAM HCL) [Concomitant]
  17. VECURONIUM BROMIDE [Concomitant]
  18. PROPANOLOL HYDROCHLORIDE (PROPRANOLOL HYDROCHLORIDE) [Concomitant]
  19. SPIRONOLACTONE [Concomitant]

REACTIONS (4)
  - PULMONARY HAEMORRHAGE [None]
  - RESPIRATORY TRACT INFECTION [None]
  - SUPRAVENTRICULAR EXTRASYSTOLES [None]
  - VENTRICULAR EXTRASYSTOLES [None]
